FAERS Safety Report 6010269-8 (Version None)
Quarter: 2008Q4

REPORT INFORMATION
  Report Type: 
  Country: None (occurrence: None)
  Receive Date: 20081218
  Receipt Date: 20080320
  Transmission Date: 20090506
  Serious: No
  Sender: FDA-Public Use
  Company Number: A0716714A

PATIENT
  Age: 61 Year
  Sex: Female

DRUGS (3)
  1. FLONASE [Suspect]
     Indication: MULTIPLE ALLERGIES
     Dosage: 4SPR PER DAY
     Route: 045
     Dates: start: 19980101
  2. VERAMYST [Suspect]
     Indication: MULTIPLE ALLERGIES
     Dosage: 4PUFF PER DAY
     Route: 045
     Dates: start: 20080301
  3. PREDNISONE TAB [Concomitant]

REACTIONS (6)
  - BRONCHITIS [None]
  - DRUG INEFFECTIVE [None]
  - EYE PRURITUS [None]
  - LACRIMATION INCREASED [None]
  - ONYCHOCLASIS [None]
  - SNEEZING [None]
